FAERS Safety Report 5419859-4 (Version None)
Quarter: 2007Q3

REPORT INFORMATION
  Report Type: 
  Country: None (occurrence: None)
  Receive Date: 20070820
  Receipt Date: 20070808
  Transmission Date: 20080115
  Serious: Yes (Other)
  Sender: FDA-Public Use
  Company Number: US-PFIZER INC-2007066790

PATIENT
  Sex: Female
  Weight: 58.181 kg

DRUGS (7)
  1. NEURONTIN [Suspect]
     Indication: THERMAL BURN
  2. HYZAAR [Concomitant]
  3. GLUCOPHAGE [Concomitant]
  4. SEROQUEL [Concomitant]
  5. DESIPRAMINE HCL [Concomitant]
  6. CAPTOPRIL [Concomitant]
  7. AMARYL [Concomitant]

REACTIONS (3)
  - DRUG WITHDRAWAL SYNDROME [None]
  - FLATULENCE [None]
  - THROAT TIGHTNESS [None]
